FAERS Safety Report 5596450-0 (Version None)
Quarter: 2007Q4

REPORT INFORMATION
  Report Type: 
  Country: None (occurrence: None)
  Receive Date: 20071218
  Receipt Date: 20070125
  Transmission Date: 20080405
  Serious: Yes (Hospitalization, Other)
  Sender: FDA-Public Use
  Company Number: 2006057395

PATIENT
  Age: 57 Year
  Sex: Female
  Weight: 85.3 kg

DRUGS (13)
  1. BEXTRA [Suspect]
     Indication: ARTHRITIS
     Dosage: 20 MG (10 MG,2 IN 1 D)
     Dates: start: 20020701, end: 20041001
  2. BEXTRA [Suspect]
     Indication: PAIN
     Dosage: 20 MG (10 MG,2 IN 1 D)
     Dates: start: 20020701, end: 20041001
  3. CELEBREX [Concomitant]
  4. DARVOCET [Concomitant]
  5. MORPHINE [Concomitant]
  6. PERCOCET [Concomitant]
  7. ACETAMINOPHEN [Concomitant]
  8. HYDROCHLOROTHIAZIDE [Concomitant]
  9. LEVOXYL [Concomitant]
  10. NEURONTIN [Concomitant]
  11. SKELAXIN [Concomitant]
  12. ACIPHEX [Concomitant]
  13. MIACALCIN [Concomitant]

REACTIONS (1)
  - MYOCARDIAL INFARCTION [None]
